FAERS Safety Report 7146501-7 (Version None)
Quarter: 2010Q4

REPORT INFORMATION
  Report Type: 
  Country: None (occurrence: None)
  Receive Date: 20101208
  Receipt Date: 20101123
  Transmission Date: 20110411
  Serious: Yes (Other)
  Sender: FDA-Public Use
  Company Number: US-ROCHE-715261

PATIENT
  Sex: Male
  Weight: 90.7 kg

DRUGS (7)
  1. ACCUTANE [Suspect]
     Indication: ACNE
     Route: 065
     Dates: start: 20000101, end: 20020101
  2. CHERATUSSIN [Concomitant]
  3. MECLIZINE [Concomitant]
  4. ALBUTEROL [Concomitant]
  5. GUAIFENEX DM [Concomitant]
     Dosage: GUAIFENEX
  6. TRIMOX [Concomitant]
  7. ALLEGRA D 24 HOUR [Concomitant]

REACTIONS (29)
  - ANXIETY [None]
  - ARTHRITIS ENTEROPATHIC [None]
  - AUTOIMMUNE DISORDER [None]
  - COLITIS [None]
  - COLITIS ULCERATIVE [None]
  - CROHN'S DISEASE [None]
  - DEPRESSION [None]
  - DIVERTICULUM [None]
  - DUODENITIS [None]
  - DYSTHYMIC DISORDER [None]
  - ERYTHEMA NODOSUM [None]
  - GASTRITIS EROSIVE [None]
  - GASTROOESOPHAGEAL REFLUX DISEASE [None]
  - ILEITIS [None]
  - INFLAMMATORY BOWEL DISEASE [None]
  - INTERSTITIAL LUNG DISEASE [None]
  - INTESTINAL OBSTRUCTION [None]
  - IRRITABLE BOWEL SYNDROME [None]
  - LYMPHOPENIA [None]
  - MIXED CONNECTIVE TISSUE DISEASE [None]
  - NEUROPATHY PERIPHERAL [None]
  - NEUTROPENIA [None]
  - NORMOCHROMIC NORMOCYTIC ANAEMIA [None]
  - PANCYTOPENIA [None]
  - POLYARTHRITIS [None]
  - RHEUMATOID ARTHRITIS [None]
  - SUICIDAL IDEATION [None]
  - THROMBOCYTOPENIA [None]
  - THROMBOSIS [None]
